FAERS Safety Report 5528864-9 (Version None)
Quarter: 2007Q4

REPORT INFORMATION
  Report Type: 
  Country: None (occurrence: None)
  Receive Date: 20071113
  Receipt Date: 20070514
  Transmission Date: 20080405
  Serious: No
  Sender: FDA-Public Use
  Company Number: 200618492US

PATIENT
  Age: 39 Year
  Sex: Female
  Weight: 65 kg

DRUGS (5)
  1. APIDRA [Suspect]
     Dosage: 3 U QID
  2. APIDRA [Suspect]
  3. OPTICLIK [Suspect]
  4. OPTICLIK [Suspect]
  5. LANTUS [Concomitant]

REACTIONS (3)
  - BLOOD GLUCOSE DECREASED [None]
  - BLOOD GLUCOSE INCREASED [None]
  - DRUG INEFFECTIVE [None]
